FAERS Safety Report 14160729 (Version 1)
Quarter: 2017Q4

REPORT INFORMATION
  Report Type: Spontaneous
  Country: US (occurrence: US)
  Receive Date: 20171103
  Receipt Date: 20171103
  Transmission Date: 20180321
  Serious: Yes (Death)
  Sender: FDA-Public Use
  Company Number: None

PATIENT
  Age: 30 Year
  Sex: Male
  Weight: 101.7 kg

DRUGS (1)
  1. ROBITUSSIN (GUAIFENESIN) [Suspect]
     Active Substance: GUAIFENESIN
     Indication: EUPHORIC MOOD
     Dosage: 8 8 BOTTLES SEVERAL TIMES ORAL
     Route: 048
     Dates: start: 20151113, end: 20151113

REACTIONS (4)
  - Gun shot wound [None]
  - Hallucination [None]
  - Incorrect dose administered [None]
  - Intentional self-injury [None]

NARRATIVE: CASE EVENT DATE: 20151113
